FAERS Safety Report 6203851-6 (Version None)
Quarter: 2009Q2

REPORT INFORMATION
  Report Type: 
  Country: None (occurrence: None)
  Receive Date: 20090527
  Receipt Date: 20090520
  Transmission Date: 20091009
  Serious: Yes (Hospitalization)
  Sender: FDA-Public Use
  Company Number: US-PFIZER INC-2009215583

PATIENT
  Sex: Male
  Weight: 72 kg

DRUGS (12)
  1. FLUOROURACIL [Suspect]
     Indication: OESOPHAGEAL CARCINOMA
     Dosage: 400 MG/M2, ONCE
     Route: 040
     Dates: start: 20090304, end: 20090304
  2. FLUOROURACIL [Suspect]
     Dosage: 2400 MG/M2, ONCE
     Route: 041
     Dates: start: 20090304, end: 20090306
  3. SUNITINIB MALATE [Suspect]
     Indication: OESOPHAGEAL CARCINOMA
     Dosage: 25 MG, 1X/DAY
     Route: 048
     Dates: start: 20090305, end: 20090310
  4. IRINOTECAN HCL [Suspect]
     Indication: OESOPHAGEAL CARCINOMA
     Dosage: 180 MG/M2, ONCE
     Route: 042
     Dates: start: 20090304, end: 20090304
  5. CALCIUM FOLINATE [Suspect]
     Indication: OESOPHAGEAL CARCINOMA
     Dosage: 400 MG/M2, ONCE
     Route: 042
     Dates: start: 20090304, end: 20090304
  6. ALOE BARBADENSIS [Concomitant]
     Dosage: UNK
     Route: 048
     Dates: start: 20090312, end: 20090406
  7. LOPERAMIDE [Concomitant]
     Dosage: UNK
     Dates: start: 20081006, end: 20090406
  8. OMEPRAZOL [Concomitant]
     Dosage: UNK
     Dates: start: 20080924, end: 20090406
  9. COMPAZINE [Concomitant]
     Dosage: UNK
     Dates: start: 20081006, end: 20090406
  10. BACLOFEN [Concomitant]
     Dosage: UNK
     Dates: start: 20090317, end: 20090406
  11. FENTANYL [Concomitant]
     Dosage: UNK
     Dates: start: 20090317, end: 20090406
  12. CARAFATE [Concomitant]
     Dosage: UNK
     Dates: start: 20090312, end: 20090406

REACTIONS (1)
  - ATRIAL FIBRILLATION [None]
